FAERS Safety Report 15770369 (Version 1)
Quarter: 2018Q4

REPORT INFORMATION
  Report Type: Spontaneous
  Country: FR (occurrence: FR)
  Receive Date: 20181228
  Receipt Date: 20181228
  Transmission Date: 20190205
  Serious: Yes (Hospitalization)
  Sender: FDA-Public Use
  Company Number: FR-BRISTOL-MYERS SQUIBB COMPANY-BMS-2018-120071

PATIENT
  Age: 54 Year
  Sex: Male

DRUGS (6)
  1. FASLODEX [Suspect]
     Active Substance: FULVESTRANT
     Indication: BREAST CANCER
     Dosage: 1000 MG, 1 MONTH
     Route: 030
     Dates: start: 20180115, end: 20180115
  2. IBRANCE [Suspect]
     Active Substance: PALBOCICLIB
     Indication: BREAST CANCER
     Dosage: 100 MG, 1 DAY
     Route: 048
     Dates: start: 20180115, end: 20180130
  3. ALLOPURINOL. [Suspect]
     Active Substance: ALLOPURINOL
     Indication: PRODUCT USED FOR UNKNOWN INDICATION
     Dosage: 200 MG, 1 DAY
     Route: 048
     Dates: end: 20180130
  4. AERIUS (DESLORATADINE) [Suspect]
     Active Substance: DESLORATADINE
     Indication: BURNING SENSATION
     Dosage: UNK
     Route: 048
  5. PRAVASTATIN SODIUM. [Suspect]
     Active Substance: PRAVASTATIN SODIUM
     Indication: DYSLIPIDAEMIA
     Dosage: 1 DF, 1 DAY
     Route: 048
     Dates: end: 20180130
  6. ESOMEPRAZOLE. [Suspect]
     Active Substance: ESOMEPRAZOLE MAGNESIUM
     Indication: PRODUCT USED FOR UNKNOWN INDICATION
     Dosage: 1 DF, 1 DAY
     Route: 048
     Dates: end: 20180130

REACTIONS (3)
  - Skin exfoliation [Recovered/Resolved]
  - Eczema [Recovered/Resolved]
  - Xerosis [Recovered/Resolved]

NARRATIVE: CASE EVENT DATE: 20180124
